FAERS Safety Report 10354606 (Version 2)
Quarter: 2014Q3

REPORT INFORMATION
  Report Type: Spontaneous
  Country: DE (occurrence: DE)
  Receive Date: 20140731
  Receipt Date: 20140902
  Transmission Date: 20150326
  Serious: Yes (Hospitalization)
  Sender: FDA-Public Use
  Company Number: DE-SA-2014SA100975

PATIENT
  Age: 50 Year
  Weight: 92 kg

DRUGS (2)
  1. ACETYLSALICYLIC  ACID [Concomitant]
     Active Substance: ASPIRIN
  2. CLEXANE [Suspect]
     Active Substance: ENOXAPARIN SODIUM
     Indication: ANTICOAGULANT THERAPY
     Route: 058

REACTIONS (9)
  - Coagulation time prolonged [Recovered/Resolved]
  - Shock haemorrhagic [Recovered/Resolved]
  - Arterial haemorrhage [Recovered/Resolved]
  - Wound haemorrhage [Recovered/Resolved]
  - Incorrect dose administered [Unknown]
  - Accidental overdose [Unknown]
  - Anaemia [Recovered/Resolved]
  - Venous oxygen partial pressure decreased [Recovered/Resolved]
  - Coagulopathy [Recovering/Resolving]
